FAERS Safety Report 8277228-6 (Version None)
Quarter: 2012Q2

REPORT INFORMATION
  Report Type: 
  Country: None (occurrence: None)
  Receive Date: 20120412
  Receipt Date: 20110610
  Transmission Date: 20120825
  Serious: Yes (Hospitalization)
  Sender: FDA-Public Use
  Company Number: US-GLAXOSMITHKLINE-A0934162A

PATIENT
  Age: 61 Year
  Sex: Male

DRUGS (1)
  1. AVANDAMET [Suspect]
     Indication: DIABETES MELLITUS
     Route: 048

REACTIONS (4)
  - STENT PLACEMENT [None]
  - CARDIAC DISORDER [None]
  - CORONARY ARTERY DISEASE [None]
  - ANGIOPLASTY [None]
